FAERS Safety Report 7561801-4 (Version None)
Quarter: 2011Q2

REPORT INFORMATION
  Report Type: 
  Country: None (occurrence: None)
  Receive Date: 20110621
  Receipt Date: 20110614
  Transmission Date: 20111010
  Serious: Yes (Hospitalization)
  Sender: FDA-Public Use
  Company Number: JP-CEPHALON-2011001802

PATIENT
  Sex: Male
  Weight: 55 kg

DRUGS (14)
  1. OLOPATADINE [Concomitant]
  2. GRANISETRON HCL [Concomitant]
     Dates: start: 20101216, end: 20101217
  3. PREDNISOLONE [Concomitant]
     Dates: start: 20110112, end: 20110127
  4. LEVOFLOXACIN [Concomitant]
     Dates: start: 20110117
  5. FAMOTIDINE [Concomitant]
     Dates: start: 20101224
  6. BENDAMUSTINE HCL [Suspect]
     Indication: MANTLE CELL LYMPHOMA RECURRENT
     Route: 042
     Dates: start: 20101216, end: 20101217
  7. DIFLUPREDNATE [Concomitant]
     Dates: start: 20101217, end: 20101221
  8. BROTIZOLAM [Concomitant]
     Dates: start: 20110115
  9. BENDAMUSTINE HCL [Suspect]
     Route: 042
     Dates: start: 20110112, end: 20110112
  10. DEXAMETHASONE [Concomitant]
     Dates: end: 20101221
  11. MAGNESIUM OXIDE [Concomitant]
     Dates: start: 20101216
  12. HEPARIN [Concomitant]
  13. SULFAMETHOXAZOLE AND TRIMETHOPRIM [Concomitant]
  14. BUTENAFINE HYDROCHLORIDE [Concomitant]
     Dates: start: 20101227

REACTIONS (8)
  - ASPARTATE AMINOTRANSFERASE INCREASED [None]
  - HYPERSENSITIVITY [None]
  - ALANINE AMINOTRANSFERASE INCREASED [None]
  - ECZEMA ASTEATOTIC [None]
  - LYMPHOCYTE COUNT DECREASED [None]
  - BLOOD AMYLASE INCREASED [None]
  - RASH [None]
  - BLOOD CREATININE INCREASED [None]
